FAERS Safety Report 4455926-X (Version None)
Quarter: 2004Q3

REPORT INFORMATION
  Report Type: 
  Country: None (occurrence: None)
  Receive Date: 20040922
  Receipt Date: 20040910
  Transmission Date: 20050211
  Serious: Yes (Other)
  Sender: FDA-Public Use
  Company Number: GB-BRISTOL-MYERS SQUIBB COMPANY-12698106

PATIENT
  Sex: Male

DRUGS (2)
  1. REYATAZ [Suspect]
     Route: 048
     Dates: start: 20040401
  2. RITONAVIR [Concomitant]

REACTIONS (4)
  - DEPRESSION [None]
  - DISORIENTATION [None]
  - FATIGUE [None]
  - SUICIDAL IDEATION [None]
